FAERS Safety Report 8287886-8 (Version None)
Quarter: 2012Q2

REPORT INFORMATION
  Report Type: 
  Country: None (occurrence: None)
  Receive Date: 20120416
  Receipt Date: 20120413
  Transmission Date: 20120825
  Serious: Yes (Other)
  Sender: FDA-Public Use
  Company Number: IT-ROCHE-1059488

PATIENT
  Sex: Female

DRUGS (6)
  1. PLAQUENIL [Concomitant]
  2. ASPIRIN [Concomitant]
  3. ARAVA [Concomitant]
  4. MABTHERA [Suspect]
     Indication: RHEUMATOID ARTHRITIS
     Route: 042
     Dates: start: 20120210, end: 20120210
  5. MABTHERA [Suspect]
     Indication: SJOGREN'S SYNDROME
  6. PREDNISONE TAB [Concomitant]
     Route: 048

REACTIONS (3)
  - COUGH [None]
  - HYPERHIDROSIS [None]
  - HYPOTENSION [None]
